FAERS Safety Report 17557625 (Version 1)
Quarter: 2020Q1

REPORT INFORMATION
  Report Type: Spontaneous
  Country: HK (occurrence: HK)
  Receive Date: 20200318
  Receipt Date: 20200318
  Transmission Date: 20200409
  Serious: Yes (Death)
  Sender: FDA-Public Use
  Company Number: HK-FRESENIUS KABI-FK202002731

PATIENT
  Age: 61 Year
  Sex: Male

DRUGS (7)
  1. LITHIUM. [Suspect]
     Active Substance: LITHIUM
     Indication: SCHIZOPHRENIA
     Dosage: UNKNOWN
     Route: 065
  2. RISPERIDONE. [Suspect]
     Active Substance: RISPERIDONE
     Indication: SCHIZOPHRENIA
     Dosage: UNKNOWN
     Route: 065
  3. HALOPERIDOL INJECTION (MANUFACTURER UNKNOWN) [Suspect]
     Active Substance: HALOPERIDOL LACTATE
     Indication: SEDATIVE THERAPY
     Route: 065
     Dates: start: 201010, end: 2010
  4. QUETIAPINE. [Suspect]
     Active Substance: QUETIAPINE
     Indication: SCHIZOPHRENIA
     Dosage: UNKNOWN
     Route: 065
  5. NITROFURANTOIN. [Suspect]
     Active Substance: NITROFURANTOIN
     Indication: URINARY TRACT INFECTION
     Dosage: UNKNOWN
     Route: 065
  6. HALOPERIDOL DECANOATE INJECTION (MANUFACTURER UNKNOWN) [Suspect]
     Active Substance: HALOPERIDOL DECANOATE
     Indication: SCHIZOPHRENIA
     Dosage: UNKNOWN
     Route: 065
     Dates: start: 201010, end: 2010
  7. CLONAZEPAM. [Suspect]
     Active Substance: CLONAZEPAM
     Indication: SCHIZOPHRENIA
     Dosage: UNKNOWN
     Route: 065

REACTIONS (2)
  - Pulmonary embolism [Fatal]
  - Deep vein thrombosis [Fatal]

NARRATIVE: CASE EVENT DATE: 2010
